FAERS Safety Report 23308055 (Version 2)
Quarter: 2024Q1

REPORT INFORMATION
  Report Type: Spontaneous
  Country: DE (occurrence: DE)
  Receive Date: 20231218
  Receipt Date: 20240308
  Transmission Date: 20240410
  Serious: Yes (Life-Threatening, Hospitalization, Other)
  Sender: FDA-Public Use
  Company Number: DE-002147023-NVSC2023DE240306

PATIENT
  Age: 81 Year
  Sex: Female
  Weight: 85 kg

DRUGS (1)
  1. BEOVU [Suspect]
     Active Substance: BROLUCIZUMAB-DBLL
     Indication: Neovascular age-related macular degeneration
     Dosage: UNK, Q4W (SURGICAL DRUG ADMINISTRATION) LEFT EYE
     Route: 031
     Dates: start: 20230920, end: 20231101

REACTIONS (7)
  - Atrial fibrillation [Recovering/Resolving]
  - Retinal vasculitis [Not Recovered/Not Resolved]
  - Chorioretinitis [Recovered/Resolved with Sequelae]
  - Retinal vein occlusion [Recovering/Resolving]
  - Visual acuity reduced [Unknown]
  - Maculopathy [Recovered/Resolved with Sequelae]
  - Vitreous floaters [Unknown]

NARRATIVE: CASE EVENT DATE: 20231101
